FAERS Safety Report 8267696-8 (Version None)
Quarter: 2012Q2

REPORT INFORMATION
  Report Type: 
  Country: None (occurrence: None)
  Receive Date: 20120409
  Receipt Date: 20120329
  Transmission Date: 20120825
  Serious: Yes (Other)
  Sender: FDA-Public Use
  Company Number: ES-JNJFOC-20120401506

PATIENT
  Age: 54 Year
  Sex: Female
  Weight: 70.3 kg

DRUGS (14)
  1. ABILIFY [Interacting]
     Indication: OBSESSIVE-COMPULSIVE DISORDER
     Route: 048
     Dates: start: 20110701
  2. KETOCONAZOLE [Interacting]
     Indication: VULVOVAGINAL CANDIDIASIS
     Route: 067
     Dates: start: 20110326, end: 20110521
  3. LOPERAMIDE HYDROCHLORIDE [Suspect]
     Indication: CONSTIPATION
     Route: 065
     Dates: start: 20100101
  4. RISPERIDONE [Suspect]
     Route: 065
     Dates: start: 20110610, end: 20110701
  5. ITRACONAZOLE [Interacting]
     Indication: VULVOVAGINAL CANDIDIASIS
     Route: 065
     Dates: start: 20110201, end: 20110830
  6. RISPERIDONE [Suspect]
     Indication: PRODUCT USED FOR UNKNOWN INDICATION
     Route: 065
     Dates: start: 20110701
  7. ANAFRANIL [Interacting]
     Indication: OBSESSIVE-COMPULSIVE DISORDER
     Route: 048
     Dates: start: 20110625
  8. RISPERIDONE [Suspect]
     Route: 065
     Dates: start: 20110323, end: 20110330
  9. EVISTA [Interacting]
     Indication: OSTEOPOROSIS
     Route: 048
     Dates: start: 20100801
  10. SERTRALINE HYDROCHLORIDE [Interacting]
     Indication: OBSESSIVE-COMPULSIVE DISORDER
     Route: 048
     Dates: start: 20110101
  11. CALCIUM CARBONATE [Interacting]
     Indication: OSTEOPOROSIS
     Route: 048
     Dates: start: 20100701
  12. RISPERIDONE [Suspect]
     Route: 065
     Dates: start: 20110331, end: 20110609
  13. ABILIFY [Interacting]
     Route: 048
     Dates: start: 20110323, end: 20110330
  14. ANAFRANIL [Interacting]
     Route: 048
     Dates: start: 20110101, end: 20110609

REACTIONS (2)
  - DRUG INTERACTION [None]
  - ABNORMAL WEIGHT GAIN [None]
